FAERS Safety Report 4721541-3 (Version None)
Quarter: 2005Q3

REPORT INFORMATION
  Report Type: 
  Country: None (occurrence: None)
  Receive Date: 20050721
  Receipt Date: 20041108
  Transmission Date: 20060218
  Serious: No
  Sender: FDA-Public Use
  Company Number: US-BRISTOL-MYERS SQUIBB COMPANY-12763777

PATIENT
  Age: 76 Year
  Sex: Female
  Weight: 68 kg

DRUGS (9)
  1. COUMADIN [Suspect]
     Indication: ATRIAL FIBRILLATION
     Dosage: BEGAN WITH VARYING DOSE, CURRENT DOSE 3 MG, 1 TAB 6 X WEEKLY AND 4 MG 1 TAB WEEKLY
     Route: 048
     Dates: start: 20010701
  2. ACCUPRIL [Concomitant]
     Dates: start: 20010901
  3. VITAMINS [Concomitant]
     Dosage: TAKEN FOR ^YEARS^.
  4. TETRACYCLINE [Concomitant]
  5. DERMATOP [Concomitant]
     Route: 061
  6. CALCIUM GLUCONATE [Concomitant]
  7. METROGEL [Concomitant]
  8. TEARS NATURALE [Concomitant]
  9. AMIODARONE [Concomitant]

REACTIONS (1)
  - HYPOTRICHOSIS [None]
